FAERS Safety Report 9191765 (Version 2)
Quarter: 2013Q1

REPORT INFORMATION
  Report Type: Report from Study
  Country: GB (occurrence: GB)
  Receive Date: 20130327
  Receipt Date: 20130327
  Transmission Date: 20140127
  Serious: Yes (Hospitalization)
  Sender: FDA-Public Use
  Company Number: GB-009507513-1004GBR00087

PATIENT
  Age: 67 Year
  Sex: Male

DRUGS (14)
  1. PLACEBO [Suspect]
     Indication: HIGH DENSITY LIPOPROTEIN DECREASED
     Dosage: 1 DF, QD
     Route: 048
     Dates: start: 20100111, end: 20100217
  2. PLACEBO [Suspect]
     Dosage: 1 DF, QD
     Route: 048
     Dates: start: 20100217, end: 20100319
  3. PLACEBO [Suspect]
     Dosage: 1 DF, QD
     Route: 048
     Dates: start: 20100419
  4. VYTORIN [Suspect]
     Indication: HYPERCHOLESTEROLAEMIA
     Dosage: 10/40 MG QD
     Route: 048
     Dates: start: 20091006
  5. MK-0524 [Suspect]
     Indication: HIGH DENSITY LIPOPROTEIN DECREASED
     Dosage: 1 G, QD
     Route: 048
     Dates: start: 20091103, end: 20091201
  6. MK-0524 [Suspect]
     Dosage: 2 G, QD
     Route: 048
     Dates: start: 20091201, end: 20091229
  7. GTN [Concomitant]
  8. TRAMADOL HYDROCHLORIDE [Concomitant]
  9. SOTALOL HYDROCHLORIDE [Concomitant]
  10. WARFARIN [Concomitant]
  11. PERINDOPRIL [Concomitant]
  12. NICORANDIL [Concomitant]
  13. GLUCOSAMINE [Concomitant]
  14. SIMPLE LINCTUS (CODEINE SULFATE (+) IPECAC (+) SQUILL) [Concomitant]

REACTIONS (1)
  - Gout [Recovered/Resolved]
